FAERS Safety Report 4840954-2 (Version None)
Quarter: 2005Q4

REPORT INFORMATION
  Report Type: 
  Country: None (occurrence: None)
  Receive Date: 20051130
  Receipt Date: 20050804
  Transmission Date: 20060501
  Serious: No
  Sender: FDA-Public Use
  Company Number: US-BRISTOL-MYERS SQUIBB COMPANY-13063870

PATIENT
  Age: 45 Year
  Sex: Male

DRUGS (2)
  1. ABILIFY [Suspect]
     Dates: start: 20050707
  2. ZOLOFT [Concomitant]

REACTIONS (3)
  - DYSARTHRIA [None]
  - FEELING ABNORMAL [None]
  - MUSCLE TWITCHING [None]
